FAERS Safety Report 12791898 (Version 1)
Quarter: 2016Q3

REPORT INFORMATION
  Report Type: Spontaneous
  Country: US (occurrence: US)
  Receive Date: 20160929
  Receipt Date: 20160929
  Transmission Date: 20161109
  Serious: Yes (Other)
  Sender: FDA-Public Use
  Company Number: US-TEVA-697035USA

PATIENT
  Sex: Female
  Weight: 44.95 kg

DRUGS (1)
  1. TRAMADOL. [Suspect]
     Active Substance: TRAMADOL
     Indication: PAIN
     Route: 065

REACTIONS (4)
  - Weight decreased [Unknown]
  - Fall [Unknown]
  - Spinal fracture [Unknown]
  - Fracture [Unknown]
